FAERS Safety Report 6907213-5 (Version None)
Quarter: 2010Q3

REPORT INFORMATION
  Report Type: 
  Country: None (occurrence: None)
  Receive Date: 20100804
  Receipt Date: 20100727
  Transmission Date: 20110219
  Serious: Yes (Other)
  Sender: FDA-Public Use
  Company Number: US-AMGEN-KDL427561

PATIENT
  Sex: Male

DRUGS (1)
  1. ENBREL [Suspect]
     Indication: PSORIASIS
     Route: 058
     Dates: start: 20100708, end: 20100724

REACTIONS (7)
  - ARTHRALGIA [None]
  - BUTTERFLY RASH [None]
  - DIZZINESS [None]
  - JOINT SWELLING [None]
  - LYMPHADENOPATHY [None]
  - OEDEMA PERIPHERAL [None]
  - VISION BLURRED [None]
